FAERS Safety Report 15789222 (Version 1)
Quarter: 2019Q1

REPORT INFORMATION
  Report Type: Spontaneous
  Country: US (occurrence: US)
  Receive Date: 20190103
  Receipt Date: 20190103
  Transmission Date: 20190417
  Serious: Yes (Disabling)
  Sender: FDA-Public Use
  Company Number: None

PATIENT
  Age: 58 Year
  Sex: Female
  Weight: 45 kg

DRUGS (1)
  1. RIBAVIRIN. [Suspect]
     Active Substance: RIBAVIRIN
     Indication: INFLUENZA
     Route: 048

REACTIONS (3)
  - Anosmia [None]
  - Ageusia [None]
  - Stem cell transplant [None]

NARRATIVE: CASE EVENT DATE: 20161120
